FAERS Safety Report 24904042 (Version 1)
Quarter: 2025Q1

REPORT INFORMATION
  Report Type: Spontaneous
  Country: IT (occurrence: IT)
  Receive Date: 20250130
  Receipt Date: 20250130
  Transmission Date: 20250409
  Serious: Yes (Hospitalization, Other)
  Sender: DR REDDYS
  Company Number: IT-GERMAN-ITA/2025/01/001454

PATIENT
  Age: 67 Year
  Sex: Male

DRUGS (1)
  1. DAPTOMYCIN [Suspect]
     Active Substance: DAPTOMYCIN
     Indication: Endocarditis staphylococcal

REACTIONS (2)
  - Eosinophilic pneumonia [Recovered/Resolved]
  - Product use in unapproved indication [Unknown]
